FAERS Safety Report 6271945-5 (Version None)
Quarter: 2009Q3

REPORT INFORMATION
  Report Type: 
  Country: None (occurrence: None)
  Receive Date: 20090713
  Receipt Date: 20090612
  Transmission Date: 20100115
  Serious: No
  Sender: FDA-Public Use
  Company Number: 2009BM000131

PATIENT
  Age: 12 Year
  Sex: Male

DRUGS (3)
  1. KUVAN [Suspect]
     Indication: PHENYLKETONURIA
     Dosage: 1100 MG;QD;PO
     Route: 048
     Dates: start: 20090501
  2. LORATADINE [Concomitant]
  3. NUTRIENTS WITHOUT PHENYLALANINE [Concomitant]

REACTIONS (6)
  - ABNORMAL BEHAVIOUR [None]
  - FLATULENCE [None]
  - HEADACHE [None]
  - INSOMNIA [None]
  - RESTLESSNESS [None]
  - RHINORRHOEA [None]
